FAERS Safety Report 5470752-0 (Version None)
Quarter: 2007Q3

REPORT INFORMATION
  Report Type: 
  Country: None (occurrence: None)
  Receive Date: 20070928
  Receipt Date: 20070918
  Transmission Date: 20080115
  Serious: Yes (Hospitalization)
  Sender: FDA-Public Use
  Company Number: FI-AVENTIS-200718349GDDC

PATIENT
  Age: 56 Year
  Sex: Female

DRUGS (9)
  1. DOCETAXEL [Suspect]
     Indication: BREAST CANCER
     Route: 042
     Dates: start: 20060815, end: 20060815
  2. XELODA [Suspect]
     Indication: BREAST CANCER
     Route: 048
     Dates: start: 20060815, end: 20060827
  3. CYCLOPHOSPHAMIDE [Suspect]
     Indication: BREAST CANCER
     Dosage: DOSE: UNK
  4. EPIRUBICIN [Suspect]
     Indication: BREAST CANCER
     Dosage: DOSE: UNK
  5. FLUOROURACIL [Suspect]
     Indication: BREAST CANCER
     Dosage: DOSE: UNK
  6. ESCITALOPRAM [Concomitant]
  7. OPAMOX [Concomitant]
  8. TENOX                              /00393701/ [Concomitant]
  9. MOBILEX [Concomitant]

REACTIONS (5)
  - FATIGUE [None]
  - GAIT DISTURBANCE [None]
  - HYPOTENSION [None]
  - PAIN IN EXTREMITY [None]
  - VERTIGO [None]
